FAERS Safety Report 18940874 (Version 1)
Quarter: 2021Q1

REPORT INFORMATION
  Report Type: Spontaneous
  Country: BR (occurrence: BR)
  Receive Date: 20210225
  Receipt Date: 20210225
  Transmission Date: 20210420
  Serious: Yes (Other)
  Sender: FDA-Public Use
  Company Number: BR-NOVOPROD-788781

PATIENT
  Sex: Female
  Weight: 76 kg

DRUGS (4)
  1. NOVOLIN N [Suspect]
     Active Substance: INSULIN HUMAN
     Indication: TYPE 2 DIABETES MELLITUS
     Dosage: 80 IU, QD (50?0?30)
     Route: 065
     Dates: start: 2003
  2. SIMVASTATIN. [Concomitant]
     Active Substance: SIMVASTATIN
     Dosage: 20 MG, QD
     Route: 065
  3. VITAMIN B3 [Concomitant]
     Active Substance: NIACIN
     Dosage: 1 TABLET EVERY 20 DAYS
     Route: 065
  4. ENALAPRIL [Concomitant]
     Active Substance: ENALAPRIL
     Indication: HYPERTENSION
     Dosage: 20 MG, QD
     Route: 065

REACTIONS (5)
  - Hypoglycaemia [Recovered/Resolved]
  - Drug ineffective [Unknown]
  - Hyperglycaemia [Not Recovered/Not Resolved]
  - Injection site discolouration [Recovered/Resolved]
  - Syncope [Recovered/Resolved]
